FAERS Safety Report 25272686 (Version 1)
Quarter: 2025Q2

REPORT INFORMATION
  Report Type: Spontaneous
  Country: US (occurrence: US)
  Receive Date: 20250506
  Receipt Date: 20250506
  Transmission Date: 20250717
  Serious: No
  Sender: BIOCON
  Company Number: US-BIOCON-BCN-2025-000113

PATIENT
  Age: 51 Year
  Sex: Female

DRUGS (1)
  1. ATORVASTATIN [Suspect]
     Active Substance: ATORVASTATIN
     Indication: Product used for unknown indication
     Dates: start: 20241030

REACTIONS (4)
  - Gait disturbance [Unknown]
  - Dyspnoea [Unknown]
  - Muscle spasms [Unknown]
  - Malaise [Unknown]
